FAERS Safety Report 13784962 (Version 1)
Quarter: 2017Q3

REPORT INFORMATION
  Report Type: Spontaneous
  Country: US (occurrence: US)
  Receive Date: 20170724
  Receipt Date: 20170724
  Transmission Date: 20171127
  Serious: No
  Sender: FDA-Public Use
  Company Number: US-IMPAX LABORATORIES, INC-2017-IPXL-02057

PATIENT
  Age: 63 Year
  Sex: Female

DRUGS (6)
  1. RYTARY [Suspect]
     Active Substance: CARBIDOPA\LEVODOPA
     Indication: PARKINSON^S DISEASE
     Dosage: 48.75/195 MG, 2 CAPSULES FOUR TIMES A DAY
     Route: 048
     Dates: start: 20170512
  2. VIVELLE-DOT [Concomitant]
     Active Substance: ESTRADIOL
     Indication: HORMONE REPLACEMENT THERAPY
     Dosage: 0.025 MG, UNK
     Route: 065
  3. RYTARY [Suspect]
     Active Substance: CARBIDOPA\LEVODOPA
     Dosage: 48.75/195 MG, 1 CAPSULE TWICE A DAY
     Route: 048
     Dates: start: 201706
  4. ROPINIROLE. [Concomitant]
     Active Substance: ROPINIROLE
     Indication: PARKINSON^S DISEASE
     Dosage: 4 MG, UNK
     Route: 065
     Dates: start: 2016
  5. VIVELLE-DOT [Concomitant]
     Active Substance: ESTRADIOL
     Indication: HOT FLUSH
  6. AZILECT [Concomitant]
     Active Substance: RASAGILINE MESYLATE
     Indication: PARKINSON^S DISEASE
     Dosage: 1 MG, UNK
     Route: 065

REACTIONS (2)
  - Dysarthria [Not Recovered/Not Resolved]
  - Somnolence [Recovered/Resolved]

NARRATIVE: CASE EVENT DATE: 20170512
